FAERS Safety Report 7149991-9 (Version None)
Quarter: 2010Q4

REPORT INFORMATION
  Report Type: 
  Country: None (occurrence: None)
  Receive Date: 20101210
  Receipt Date: 20101202
  Transmission Date: 20110411
  Serious: Yes (Death)
  Sender: FDA-Public Use
  Company Number: US-SHIRE-SPV1-2010-01875

PATIENT
  Age: 43 Year
  Sex: Male

DRUGS (1)
  1. FOSRENOL [Suspect]
     Dosage: 1000 MG, 3X/DAY:TID
     Dates: start: 20100501

REACTIONS (1)
  - DEATH [None]
